FAERS Safety Report 5711674-7 (Version None)
Quarter: 2008Q2

REPORT INFORMATION
  Report Type: 
  Country: None (occurrence: None)
  Receive Date: 20080421
  Receipt Date: 20080409
  Transmission Date: 20081010
  Serious: Yes (Other)
  Sender: FDA-Public Use
  Company Number: US-PFIZER INC-2007106766

PATIENT
  Sex: Male
  Weight: 88.5 kg

DRUGS (12)
  1. CHANTIX [Suspect]
     Indication: SMOKING CESSATION THERAPY
     Route: 048
     Dates: start: 20070901, end: 20071201
  2. OXYCODONE HCL [Concomitant]
     Indication: ARTHRITIS
  3. GABAPENTIN [Concomitant]
  4. ALENDRONATE SODIUM [Concomitant]
  5. SERTRALINE HYDROCHLORIDE [Concomitant]
  6. FINASTERIDE [Concomitant]
  7. TERAZOSIN HCL [Concomitant]
  8. ALL OTHER THERAPEUTIC PRODUCTS [Concomitant]
  9. ACETYLSALICYLIC ACID SRT [Concomitant]
  10. ZOLOFT [Concomitant]
  11. HYTRIN [Concomitant]
  12. CALCIUM WITH VITAMIN D [Concomitant]

REACTIONS (6)
  - AGGRESSION [None]
  - ANGER [None]
  - DEPRESSION [None]
  - FEELING ABNORMAL [None]
  - IRRITABILITY [None]
  - SUICIDAL IDEATION [None]
